FAERS Safety Report 24108283 (Version 4)
Quarter: 2025Q2

REPORT INFORMATION
  Report Type: Report from Study
  Country: CA (occurrence: CA)
  Receive Date: 20240718
  Receipt Date: 20250505
  Transmission Date: 20250717
  Serious: Yes (Other)
  Sender: TAKEDA
  Company Number: CA-TAKEDA-2023TUS055968

PATIENT
  Age: 75 Year
  Sex: Female

DRUGS (19)
  1. VEDOLIZUMAB [Suspect]
     Active Substance: VEDOLIZUMAB
     Indication: Crohn^s disease
  2. VEDOLIZUMAB [Suspect]
     Active Substance: VEDOLIZUMAB
  3. VEDOLIZUMAB [Suspect]
     Active Substance: VEDOLIZUMAB
     Dosage: 300 MILLIGRAM, Q4WEEKS
     Dates: start: 20241004
  4. VEDOLIZUMAB [Suspect]
     Active Substance: VEDOLIZUMAB
     Dosage: 300 MILLIGRAM, Q4WEEKS
  5. MIDODRINE [Concomitant]
     Active Substance: MIDODRINE
  6. PREDNISONE [Concomitant]
     Active Substance: PREDNISONE
  7. VITAMIN B12 [Concomitant]
     Active Substance: CYANOCOBALAMIN
  8. VITAMIN D NOS [Concomitant]
     Active Substance: CHOLECALCIFEROL\ERGOCALCIFEROL
  9. ROSUVASTATIN [Concomitant]
     Active Substance: ROSUVASTATIN
  10. PANTOPRAZOLE SODIUM [Concomitant]
     Active Substance: PANTOPRAZOLE SODIUM
  11. CELEXA [Concomitant]
     Active Substance: CITALOPRAM HYDROBROMIDE
  12. ALLOPURINOL [Concomitant]
     Active Substance: ALLOPURINOL
  13. PANTOPRAZOLE [Concomitant]
     Active Substance: PANTOPRAZOLE
  14. CANDESARTAN [Concomitant]
     Active Substance: CANDESARTAN
  15. COLCHICINE [Concomitant]
     Active Substance: COLCHICINE
  16. CITALOPRAM [Concomitant]
     Active Substance: CITALOPRAM
  17. SPIRONOLACTONE [Concomitant]
     Active Substance: SPIRONOLACTONE
  18. MAGNESIUM [Concomitant]
     Active Substance: MAGNESIUM
  19. LORAZEPAM [Concomitant]
     Active Substance: LORAZEPAM
     Dosage: UNK UNK, QD

REACTIONS (4)
  - Crohn^s disease [Unknown]
  - Frequent bowel movements [Unknown]
  - Defaecation urgency [Unknown]
  - Off label use [Unknown]

NARRATIVE: CASE EVENT DATE: 20241004
